FAERS Safety Report 15515858 (Version 1)
Quarter: 2018Q4

REPORT INFORMATION
  Report Type: Spontaneous
  Country: DE (occurrence: DE)
  Receive Date: 20181017
  Receipt Date: 20181017
  Transmission Date: 20190205
  Serious: Yes (Other)
  Sender: FDA-Public Use
  Company Number: DE-AUROBINDO-AUR-APL-2018-050582

PATIENT
  Age: 69 Year
  Sex: Female
  Weight: 50 kg

DRUGS (3)
  1. ESOMEPRAZOLE GASTRO-RESISTANT TABLETS [Suspect]
     Active Substance: ESOMEPRAZOLE
     Indication: PROPHYLAXIS AGAINST GASTROINTESTINAL ULCER
     Dosage: UNK
     Route: 048
     Dates: start: 20070122, end: 20070215
  2. FLUPIRTINE MALEATE [Suspect]
     Active Substance: FLUPIRTINE MALEATE
     Indication: PAIN
     Dosage: 400 MILLIGRAM, DAILY
     Route: 048
     Dates: start: 20061211, end: 20070215
  3. CITALOPRAM [Suspect]
     Active Substance: CITALOPRAM HYDROBROMIDE
     Indication: DEPRESSION
     Dosage: 10-20 MG
     Route: 048
     Dates: start: 20070122, end: 20070215

REACTIONS (1)
  - Cholestasis [Recovering/Resolving]

NARRATIVE: CASE EVENT DATE: 20070213
